FAERS Safety Report 10392375 (Version 1)
Quarter: 2014Q3

REPORT INFORMATION
  Report Type: Spontaneous
  Country: US (occurrence: None)
  Receive Date: 20140815
  Receipt Date: 20140815
  Transmission Date: 20150326
  Serious: Yes (Other)
  Sender: FDA-Public Use
  Company Number: 2010S1000558

PATIENT
  Age: 58 Year
  Sex: Female
  Weight: 98 kg

DRUGS (4)
  1. CALCIUM (CALCIUM) [Concomitant]
     Active Substance: CALCIUM
  2. BENICAR [Concomitant]
     Active Substance: OLMESARTAN MEDOXOMIL
  3. PREMPRO (MEDROXYPROGESTERONE ACETATE, ESTROGENS CONJUGATED) [Concomitant]
  4. PHOSPHO-SODA [Suspect]
     Active Substance: SODIUM PHOSPHATE, DIBASIC\SODIUM PHOSPHATE, MONOBASIC
     Indication: COLONOSCOPY
     Route: 048
     Dates: start: 20061016

REACTIONS (11)
  - Renal failure chronic [None]
  - Hydronephrosis [None]
  - Renal tubular necrosis [None]
  - Nephrogenic anaemia [None]
  - Diarrhoea [None]
  - Renal failure acute [None]
  - Hyperparathyroidism secondary [None]
  - Decreased appetite [None]
  - Hyperkalaemia [None]
  - Malaise [None]
  - Hypophagia [None]

NARRATIVE: CASE EVENT DATE: 200610
